FAERS Safety Report 8903143 (Version 1)
Quarter: 2012Q4

REPORT INFORMATION
  Report Type: 
  Country: BR (occurrence: BR)
  Receive Date: 20121113
  Receipt Date: 20121113
  Transmission Date: 20130627
  Serious: Yes (Other)
  Sender: FDA-Public Use
  Company Number: BR-PFIZER INC-2012278229

PATIENT
  Age: 28 Year
  Sex: Female
  Weight: 70 kg

DRUGS (4)
  1. LYRICA [Suspect]
     Indication: TENDONITIS
     Dosage: two tablets (strength 75mg), daily
     Route: 048
     Dates: start: 201105
  2. LYRICA [Suspect]
     Indication: GENERAL BODY PAIN
     Dosage: 225 mg (three capsules of 75mg), 2x/day
     Route: 048
     Dates: start: 201109
  3. LYRICA [Suspect]
     Dosage: 75 mg (one capsule), 2x/day
     Route: 048
  4. MIOFLEX A [Concomitant]
     Indication: BURSITIS
     Dosage: 50 mg (one tablet), 1x/day (at night)
     Dates: start: 20121025, end: 20121102

REACTIONS (10)
  - Incorrect dose administered [Not Recovered/Not Resolved]
  - Blood pressure decreased [Not Recovered/Not Resolved]
  - Dysstasia [Not Recovered/Not Resolved]
  - Syncope [Not Recovered/Not Resolved]
  - Pain [Not Recovered/Not Resolved]
  - Muscle spasms [Not Recovered/Not Resolved]
  - Asthenia [Not Recovered/Not Resolved]
  - Off label use [Not Recovered/Not Resolved]
  - Hyperhidrosis [Unknown]
  - Dizziness [Unknown]
